FAERS Safety Report 5962541-5 (Version None)
Quarter: 2008Q4

REPORT INFORMATION
  Report Type: 
  Country: None (occurrence: None)
  Receive Date: 20081121
  Receipt Date: 20081117
  Transmission Date: 20090506
  Serious: Yes (Death, Hospitalization, Disabling, Other)
  Sender: FDA-Public Use
  Company Number: PHHY2008FR26474

PATIENT
  Sex: Female
  Weight: 65 kg

DRUGS (4)
  1. EXJADE [Suspect]
     Indication: IRON OVERLOAD
     Dosage: 1.5 G, QD
     Route: 048
     Dates: start: 20080202, end: 20080701
  2. EXJADE [Suspect]
     Indication: MYELODYSPLASTIC SYNDROME
     Dosage: 1 G, QD
     Route: 048
     Dates: end: 20080801
  3. EXJADE [Suspect]
     Dosage: 1500 MG DAILY
     Route: 048
     Dates: start: 20080808
  4. DANATROL [Concomitant]
     Dosage: UNK
     Dates: end: 20080724

REACTIONS (6)
  - ABSCESS LIMB [None]
  - GASTROINTESTINAL HAEMORRHAGE [None]
  - MELAENA [None]
  - PLATELET COUNT DECREASED [None]
  - SEPSIS [None]
  - SERUM FERRITIN INCREASED [None]
